FAERS Safety Report 20332945 (Version 1)
Quarter: 2022Q1

REPORT INFORMATION
  Report Type: Spontaneous
  Country: US (occurrence: US)
  Receive Date: 20220113
  Receipt Date: 20220113
  Transmission Date: 20220423
  Serious: No
  Sender: FDA-Public Use
  Company Number: US-BAYER-2022A003789

PATIENT
  Age: 40 Year
  Sex: Female
  Weight: 73.2 kg

DRUGS (2)
  1. ADEMPAS [Suspect]
     Active Substance: RIOCIGUAT
     Indication: Product used for unknown indication
     Dosage: 1.5 MG, TID
     Route: 048
  2. OPSUMIT [Suspect]
     Active Substance: MACITENTAN
     Indication: Pulmonary hypertension
     Dosage: 10 MG, QD
     Route: 048

REACTIONS (10)
  - Stress [None]
  - Product dose omission issue [None]
  - Pallor [None]
  - Asthenia [None]
  - Dysstasia [None]
  - Feeling cold [None]
  - Cough [None]
  - Headache [None]
  - Nasal congestion [None]
  - Malaise [None]
